FAERS Safety Report 14377508 (Version 2)
Quarter: 2018Q3

REPORT INFORMATION
  Report Type: Spontaneous
  Country: FR (occurrence: FR)
  Receive Date: 20180111
  Receipt Date: 20180726
  Transmission Date: 20181010
  Serious: Yes (Hospitalization)
  Sender: FDA-Public Use
  Company Number: FR-PFIZER INC-2018008152

PATIENT
  Age: 19 Year
  Sex: Female
  Weight: 52 kg

DRUGS (4)
  1. MEDROL [Suspect]
     Active Substance: METHYLPREDNISOLONE
     Indication: NASOPHARYNGITIS
     Dosage: UNK
     Route: 048
     Dates: start: 20171202, end: 20171202
  2. BIOCALYPTOL /00094201/ [Suspect]
     Active Substance: PHOLCODINE
     Indication: NASOPHARYNGITIS
     Dosage: UNK
     Route: 048
     Dates: start: 20171202, end: 20171204
  3. AMOXICILLIN. [Suspect]
     Active Substance: AMOXICILLIN
     Indication: RASH
     Dosage: UNK
     Route: 048
     Dates: start: 20171205, end: 20171208
  4. EBASTINE [Suspect]
     Active Substance: EBASTINE
     Indication: RASH
     Dosage: UNK
     Route: 048
     Dates: start: 20171204, end: 20171208

REACTIONS (1)
  - Acute generalised exanthematous pustulosis [Recovering/Resolving]

NARRATIVE: CASE EVENT DATE: 20171207
